FAERS Safety Report 6601953-3 (Version None)
Quarter: 2010Q1

REPORT INFORMATION
  Report Type: 
  Country: None (occurrence: None)
  Receive Date: 20100225
  Receipt Date: 20100216
  Transmission Date: 20100710
  Serious: Yes (Hospitalization, Disabling)
  Sender: FDA-Public Use
  Company Number: US-MERCK-0704USA05981

PATIENT
  Age: 59 Year
  Sex: Female

DRUGS (1)
  1. FOSAMAX [Suspect]
     Indication: OSTEOPOROSIS
     Route: 048
     Dates: start: 20030821, end: 20040424

REACTIONS (16)
  - CALCULUS URETERIC [None]
  - CHONDROPATHY [None]
  - DENTAL CARIES [None]
  - DIZZINESS [None]
  - EYE PAIN [None]
  - HEADACHE [None]
  - HYDRONEPHROSIS [None]
  - NECK PAIN [None]
  - ORAL DISORDER [None]
  - OSTEONECROSIS [None]
  - PERICORONITIS [None]
  - SINUSITIS [None]
  - TEMPOROMANDIBULAR JOINT SYNDROME [None]
  - TINNITUS [None]
  - TOOTH IMPACTED [None]
  - TOOTH INFECTION [None]
